FAERS Safety Report 6105358-3 (Version None)
Quarter: 2009Q1

REPORT INFORMATION
  Report Type: 
  Country: None (occurrence: None)
  Receive Date: 20090306
  Receipt Date: 20090220
  Transmission Date: 20090719
  Serious: Yes (Other)
  Sender: FDA-Public Use
  Company Number: IT-PFIZER INC-2009172797

PATIENT

DRUGS (5)
  1. LATANOPROST [Suspect]
  2. CARTEOLOL [Concomitant]
     Dosage: UNK
  3. DORZOLAMIDE [Concomitant]
     Dosage: UNK
  4. ATROPINE [Concomitant]
     Dosage: UNK
  5. DEXAMETHASONE [Concomitant]
     Dosage: 5 TIME A DAY

REACTIONS (1)
  - INTRAOCULAR PRESSURE INCREASED [None]
